FAERS Safety Report 7042611-3 (Version None)
Quarter: 2010Q4

REPORT INFORMATION
  Report Type: 
  Country: None (occurrence: None)
  Receive Date: 20101007
  Receipt Date: 20100921
  Transmission Date: 20110411
  Serious: Yes (Other)
  Sender: FDA-Public Use
  Company Number: JPI-P-012329

PATIENT
  Age: 48 Year
  Sex: Female

DRUGS (3)
  1. XYREM [Suspect]
     Indication: NARCOLEPSY
     Dosage: 4.5 GM (2.25 GM, 2 IN 1 D), ORAL; 7 GM (3.5 GM, 2 IN 1 D), ORAL; 7.5 GM (3.75 GM, 2 IN 1 D), ORAL
     Route: 048
     Dates: start: 20090120
  2. CLONAZEPAM [Concomitant]
  3. SERTRALINE HYDROCHLORIDE [Concomitant]

REACTIONS (8)
  - BLADDER MALPOSITION ACQUIRED [None]
  - CONDITION AGGRAVATED [None]
  - DUPUYTREN'S CONTRACTURE [None]
  - DYSKINESIA [None]
  - HEADACHE [None]
  - POLLAKIURIA [None]
  - SLEEP DISORDER [None]
  - TREMOR [None]
